FAERS Safety Report 8781385 (Version 2)
Quarter: 2012Q4

REPORT INFORMATION
  Report Type: 
  Country: CO (occurrence: CO)
  Receive Date: 20120913
  Receipt Date: 20120928
  Transmission Date: 20130627
  Serious: Yes (Hospitalization)
  Sender: FDA-Public Use
  Company Number: PHHY2012CO077895

PATIENT
  Age: 20 Year
  Sex: Female

DRUGS (5)
  1. TOBI PODHALER [Suspect]
     Indication: PSEUDOMONAS INFECTION
     Dosage: 1 DF, (1 capsule BID)
     Dates: start: 20120831
  2. AMIKACINE [Concomitant]
     Dosage: UNK UKN, UNK
  3. MEROPENEM [Concomitant]
     Dosage: UNK UKN, UNK
  4. AMPICILLIN [Concomitant]
     Dosage: UNK UKN, UNK
  5. DOXYCYCLIN [Concomitant]
     Dosage: UNK UKN, UNK

REACTIONS (4)
  - Staphylococcal infection [Recovered/Resolved]
  - Pyrexia [Unknown]
  - Oxygen saturation decreased [Unknown]
  - Cough [Unknown]
